FAERS Safety Report 8011619-3 (Version None)
Quarter: 2011Q4

REPORT INFORMATION
  Report Type: 
  Country: None (occurrence: None)
  Receive Date: 20111228
  Receipt Date: 20111222
  Transmission Date: 20120403
  Serious: Yes (Other)
  Sender: FDA-Public Use
  Company Number: US-GLAXOSMITHKLINE-A0951183A

PATIENT
  Age: 61 Year
  Sex: Female

DRUGS (3)
  1. NICORETTE (MINT) [Suspect]
     Indication: SMOKING CESSATION THERAPY
     Route: 002
     Dates: start: 20110501
  2. UNSPECIFIED MEDICATION [Suspect]
  3. MULTIPLE MEDICATIONS [Concomitant]
     Indication: BIPOLAR DISORDER

REACTIONS (7)
  - DYSGRAPHIA [None]
  - EXTRAPYRAMIDAL DISORDER [None]
  - DYSKINESIA [None]
  - TREMOR [None]
  - DRUG ADMINISTRATION ERROR [None]
  - NICOTINE DEPENDENCE [None]
  - MUSCULOSKELETAL DISORDER [None]
